FAERS Safety Report 7648428-0 (Version None)
Quarter: 2011Q3

REPORT INFORMATION
  Report Type: 
  Country: None (occurrence: None)
  Receive Date: 20110801
  Receipt Date: 20110722
  Transmission Date: 20111222
  Serious: Yes (Other)
  Sender: FDA-Public Use
  Company Number: CN-ASTRAZENECA-2011SE44023

PATIENT

DRUGS (3)
  1. LIDOCAINE [Suspect]
     Indication: ARRHYTHMIA
     Dosage: FIRST TIME WITH DOSE OF 1-1.5MG/KG
     Route: 042
  2. LIDOCAINE [Suspect]
     Dosage: REPEATED DOSE OF 1-1.5MG/KG 1-2 TIMES EVERY 5 MINUTES IF NECESSARY, TOTAL DOSE { 300MG WITHIN 1 HOUR
     Route: 042
  3. LIDOCAINE [Suspect]
     Dosage: MAINTAINED WITH 1-4MG/MIN
     Route: 042

REACTIONS (1)
  - CARDIAC DISORDER [None]
